FAERS Safety Report 11524636 (Version 1)
Quarter: 2015Q3

REPORT INFORMATION
  Report Type: Spontaneous
  Country: US (occurrence: US)
  Receive Date: 20150918
  Receipt Date: 20150918
  Transmission Date: 20151125
  Serious: No
  Sender: FDA-Public Use
  Company Number: US-ROCHE-720525

PATIENT
  Age: 56 Year
  Sex: Female

DRUGS (2)
  1. PEGASYS [Suspect]
     Active Substance: PEGINTERFERON ALFA-2A
     Indication: HEPATITIS C
     Dosage: FORM: PRE-FILLED SYRINGE
     Route: 058
     Dates: start: 20100806, end: 20100813
  2. RIBASPHERE RIBAPAK [Suspect]
     Active Substance: RIBAVIRIN
     Indication: HEPATITIS C
     Dosage: 600 MG IN AM AND 400 MG IN PM
     Route: 048

REACTIONS (6)
  - Fatigue [Unknown]
  - Eye discharge [Unknown]
  - Irritability [Unknown]
  - Insomnia [Recovering/Resolving]
  - Feeling abnormal [Unknown]
  - Rash [Unknown]

NARRATIVE: CASE EVENT DATE: 20100806
